FAERS Safety Report 5004467-X (Version None)
Quarter: 2006Q2

REPORT INFORMATION
  Report Type: 
  Country: None (occurrence: None)
  Receive Date: 20060511
  Receipt Date: 20060502
  Transmission Date: 20061013
  Serious: Yes (Other)
  Sender: FDA-Public Use
  Company Number: 2006S1000031

PATIENT
  Age: 30 Year
  Sex: Female

DRUGS (1)
  1. SORIATANE [Suspect]
     Dosage: VAG
     Route: 067
     Dates: end: 20031101

REACTIONS (4)
  - DRUG EXPOSURE BEFORE PREGNANCY [None]
  - NO ADVERSE EFFECT [None]
  - PREGNANCY [None]
  - TRANSMISSION OF DRUG VIA SEMEN [None]
